FAERS Safety Report 9453212 (Version 1)
Quarter: 2013Q3

REPORT INFORMATION
  Report Type: Spontaneous
  Country: US (occurrence: US)
  Receive Date: 20130812
  Receipt Date: 20130812
  Transmission Date: 20140515
  Serious: Yes (Other)
  Sender: FDA-Public Use
  Company Number: US-PFIZER INC-2013232706

PATIENT
  Age: 61 Year
  Sex: Female
  Weight: 46.26 kg

DRUGS (2)
  1. LYRICA [Suspect]
     Indication: FIBROMYALGIA
     Dosage: 100 MG, 2X/DAY
     Route: 048
     Dates: start: 201105
  2. LYRICA [Suspect]
     Dosage: 400 MG, 2X/DAY
     Route: 048
     Dates: end: 2012

REACTIONS (5)
  - Off label use [Unknown]
  - Blood glucose increased [Unknown]
  - Loss of consciousness [Unknown]
  - Tremor [Unknown]
  - Dizziness [Unknown]
